FAERS Safety Report 9296129 (Version 1)
Quarter: 2013Q2

REPORT INFORMATION
  Report Type: Spontaneous
  Country: US (occurrence: US)
  Receive Date: 20130517
  Receipt Date: 20130517
  Transmission Date: 20140414
  Serious: No
  Sender: FDA-Public Use
  Company Number: US-TEVA-404770USA

PATIENT
  Age: 40 Year
  Sex: Female

DRUGS (2)
  1. NUVIGIL [Suspect]
     Indication: NARCOLEPSY
     Route: 048
  2. PROVIGIL [Suspect]
     Indication: NARCOLEPSY
     Route: 048

REACTIONS (1)
  - Abdominal pain upper [Unknown]
